FAERS Safety Report 5413087-4 (Version None)
Quarter: 2007Q3

REPORT INFORMATION
  Report Type: 
  Country: None (occurrence: None)
  Receive Date: 20070813
  Receipt Date: 20070801
  Transmission Date: 20080115
  Serious: Yes (Other)
  Sender: FDA-Public Use
  Company Number: US-PFIZER INC-2007064838

PATIENT
  Sex: Female
  Weight: 54.4 kg

DRUGS (3)
  1. CHANTIX [Suspect]
     Indication: SMOKING CESSATION THERAPY
  2. ATIVAN [Interacting]
     Indication: SEDATION
     Dates: start: 20070701, end: 20070701
  3. PROMETHAZINE [Interacting]
     Indication: GASTRIC DISORDER
     Dates: start: 20070701, end: 20070701

REACTIONS (14)
  - ABDOMINAL DISTENSION [None]
  - ABDOMINAL PAIN [None]
  - ANGER [None]
  - COMMUNICATION DISORDER [None]
  - DRUG INTERACTION [None]
  - FLATULENCE [None]
  - HEADACHE [None]
  - HOMICIDAL IDEATION [None]
  - NAUSEA [None]
  - PERSONALITY CHANGE [None]
  - SALIVARY HYPERSECRETION [None]
  - SOMNOLENCE [None]
  - SUICIDAL IDEATION [None]
  - TREATMENT NONCOMPLIANCE [None]
